FAERS Safety Report 7433732-1 (Version None)
Quarter: 2011Q2

REPORT INFORMATION
  Report Type: 
  Country: None (occurrence: None)
  Receive Date: 20110424
  Receipt Date: 20110419
  Transmission Date: 20111010
  Serious: No
  Sender: FDA-Public Use
  Company Number: US-B.I. PHARMACEUTICALS,INC./RIDGEFIELD-2010-BP-15206BP

PATIENT
  Sex: Male
  Weight: 102.51 kg

DRUGS (5)
  1. ASPIRIN [Concomitant]
     Dates: start: 20090130
  2. PRADAXA [Suspect]
     Indication: ATRIAL FIBRILLATION
     Dosage: 300 MG
     Route: 048
     Dates: start: 20101205, end: 20110115
  3. BENICAR [Concomitant]
     Dates: start: 20100212
  4. DIGOXIN [Concomitant]
     Dates: start: 20110218
  5. METFORMIN [Concomitant]
     Indication: DIABETES MELLITUS

REACTIONS (6)
  - RECTAL HAEMORRHAGE [None]
  - ABDOMINAL DISTENSION [None]
  - URTICARIA [None]
  - ABDOMINAL DISCOMFORT [None]
  - EPIGASTRIC DISCOMFORT [None]
  - NAUSEA [None]
